FAERS Safety Report 24190627 (Version 1)
Quarter: 2024Q3

REPORT INFORMATION
  Report Type: Spontaneous
  Country: BG (occurrence: BG)
  Receive Date: 20240808
  Receipt Date: 20240808
  Transmission Date: 20241016
  Serious: Yes (Hospitalization, Other)
  Sender: MERCK
  Company Number: BG-009507513-2408BGR000675

PATIENT
  Sex: Male

DRUGS (1)
  1. KEYTRUDA [Suspect]
     Active Substance: PEMBROLIZUMAB
     Dosage: UNK

REACTIONS (10)
  - Immune-mediated myositis [Not Recovered/Not Resolved]
  - Dyspnoea [Unknown]
  - Muscular weakness [Unknown]
  - Feeding disorder [Unknown]
  - Urinary incontinence [Unknown]
  - Neck pain [Unknown]
  - Dysphagia [Unknown]
  - General physical health deterioration [Not Recovered/Not Resolved]
  - Vision blurred [Unknown]
  - Musculoskeletal discomfort [Unknown]
